FAERS Safety Report 5319175-5 (Version None)
Quarter: 2007Q1

REPORT INFORMATION
  Report Type: 
  Country: None (occurrence: None)
  Receive Date: 20070202
  Receipt Date: 20061211
  Transmission Date: 20070707
  Serious: No
  Sender: FDA-Public Use
  Company Number: 255346

PATIENT
  Age: 13 Year
  Sex: Female
  Weight: 44.4 kg

DRUGS (2)
  1. NOVOLOG [Suspect]
     Indication: DIABETES MELLITUS INSULIN-DEPENDENT
     Dosage: SUBCUTAN.-PUMP
     Route: 058
     Dates: start: 20031102
  2. NOVOLIN N [Concomitant]

REACTIONS (2)
  - DRUG INEFFECTIVE [None]
  - KETOACIDOSIS [None]
